FAERS Safety Report 8831971 (Version 2)
Quarter: 2013Q1

REPORT INFORMATION
  Report Type: Spontaneous
  Country: US (occurrence: US)
  Receive Date: 20121009
  Receipt Date: 20130325
  Transmission Date: 20140127
  Serious: No
  Sender: FDA-Public Use
  Company Number: US-ASTRAZENECA-2012SE76468

PATIENT
  Sex: Male

DRUGS (5)
  1. SYMBICORT PMDI [Suspect]
     Indication: ASTHMA
     Dosage: 160/4.5, TWO TIMES A DAY
     Route: 055
  2. FLONASE [Concomitant]
  3. SINGULAIR [Concomitant]
  4. ANTIHISTAMINES [Concomitant]
  5. PREDNISONE [Concomitant]

REACTIONS (2)
  - Asthma [Unknown]
  - Performance status decreased [Unknown]
